FAERS Safety Report 5937324-2 (Version None)
Quarter: 2008Q4

REPORT INFORMATION
  Report Type: 
  Country: None (occurrence: None)
  Receive Date: 20081031
  Receipt Date: 20081024
  Transmission Date: 20090506
  Serious: Yes (Other)
  Sender: FDA-Public Use
  Company Number: US-AVENTIS-200817228US

PATIENT
  Sex: Male

DRUGS (2)
  1. LANTUS [Suspect]
     Route: 058
     Dates: start: 20060101
  2. METFORMIN HCL [Concomitant]
     Dosage: DOSE: UNK

REACTIONS (1)
  - DIABETIC COMA [None]
